FAERS Safety Report 7982955-1 (Version None)
Quarter: 2011Q4

REPORT INFORMATION
  Report Type: 
  Country: None (occurrence: None)
  Receive Date: 20111215
  Receipt Date: 20111205
  Transmission Date: 20120403
  Serious: Yes (Hospitalization, Other)
  Sender: FDA-Public Use
  Company Number: US-MERCK-1108USA03568

PATIENT
  Age: 78 Year
  Sex: Female
  Weight: 67 kg

DRUGS (4)
  1. VITAMINS (UNSPECIFIED) [Concomitant]
     Route: 065
     Dates: start: 20050101
  2. FOSAMAX [Suspect]
     Indication: OSTEOPOROSIS
     Route: 048
     Dates: start: 20050101, end: 20100101
  3. LEVOTHYROXINE SODIUM [Concomitant]
     Indication: HYPOTHYROIDISM
     Route: 065
     Dates: start: 19910101
  4. CALCIUM (UNSPECIFIED) [Concomitant]
     Route: 065
     Dates: start: 20050101

REACTIONS (22)
  - CATARACT [None]
  - SKIN PAPILLOMA [None]
  - VULVOVAGINAL PRURITUS [None]
  - SKIN LESION [None]
  - ARTHRITIS [None]
  - ACTINIC KERATOSIS [None]
  - DERMATITIS [None]
  - OSTEOARTHRITIS [None]
  - ARTHROPATHY [None]
  - HYPOAESTHESIA [None]
  - BURSITIS [None]
  - FATIGUE [None]
  - TREATMENT NONCOMPLIANCE [None]
  - PROPHYLAXIS [None]
  - KNEE DEFORMITY [None]
  - CERUMEN IMPACTION [None]
  - BASAL CELL CARCINOMA [None]
  - DIARRHOEA [None]
  - FEMUR FRACTURE [None]
  - HYPERLIPIDAEMIA [None]
  - ANAEMIA VITAMIN B12 DEFICIENCY [None]
  - BUNION [None]
